FAERS Safety Report 7469977-4 (Version None)
Quarter: 2011Q2

REPORT INFORMATION
  Report Type: 
  Country: None (occurrence: None)
  Receive Date: 20110429
  Receipt Date: 20110421
  Transmission Date: 20111010
  Serious: Yes (Other)
  Sender: FDA-Public Use
  Company Number: HK-2011-0926

PATIENT
  Sex: Male

DRUGS (1)
  1. NAVELBINE [Suspect]

REACTIONS (1)
  - EXTRAVASATION [None]
